FAERS Safety Report 11909167 (Version 1)
Quarter: 2016Q1

REPORT INFORMATION
  Report Type: Spontaneous
  Country: US (occurrence: US)
  Receive Date: 20160112
  Receipt Date: 20160112
  Transmission Date: 20160526
  Serious: Yes (Other)
  Sender: FDA-Public Use
  Company Number: US-BEH-2015057433

PATIENT
  Sex: Female
  Weight: 72 kg

DRUGS (19)
  1. LORATADINE. [Concomitant]
     Active Substance: LORATADINE
  2. LIDOCAINE. [Concomitant]
     Active Substance: LIDOCAINE
  3. PREDNISONE. [Concomitant]
     Active Substance: PREDNISONE
  4. LEVOTHYROXINE. [Concomitant]
     Active Substance: LEVOTHYROXINE
  5. SINGULAIR [Concomitant]
     Active Substance: MONTELUKAST SODIUM
  6. BUDESONIDE. [Concomitant]
     Active Substance: BUDESONIDE
  7. HIZENTRA [Suspect]
     Active Substance: HUMAN IMMUNOGLOBULIN G
     Indication: IMMUNODEFICIENCY COMMON VARIABLE
     Route: 058
     Dates: start: 20141110
  8. EPIPEN [Concomitant]
     Active Substance: EPINEPHRINE
  9. METOPROLOL. [Concomitant]
     Active Substance: METOPROLOL
  10. DICYCLOMINE [Concomitant]
     Active Substance: DICYCLOMINE HYDROCHLORIDE
  11. ACETAMINOPHEN. [Concomitant]
     Active Substance: ACETAMINOPHEN
  12. LORAZEPAM. [Concomitant]
     Active Substance: LORAZEPAM
  13. ASPIRIN. [Concomitant]
     Active Substance: ASPIRIN
  14. FLONASE [Concomitant]
     Active Substance: FLUTICASONE PROPIONATE
  15. MUCUS ER [Concomitant]
     Active Substance: GUAIFENESIN
  16. AMLODIPINE [Concomitant]
     Active Substance: AMLODIPINE BESYLATE
  17. VENTOLIN [Concomitant]
     Active Substance: ALBUTEROL SULFATE
  18. DIPHENHYDRAMINE. [Concomitant]
     Active Substance: DIPHENHYDRAMINE
  19. IPRATROPIUM [Concomitant]
     Active Substance: IPRATROPIUM

REACTIONS (1)
  - Chronic obstructive pulmonary disease [Unknown]
